FAERS Safety Report 8310034-2 (Version None)
Quarter: 2012Q2

REPORT INFORMATION
  Report Type: 
  Country: None (occurrence: None)
  Receive Date: 20120423
  Receipt Date: 20120413
  Transmission Date: 20120825
  Serious: Yes (Hospitalization, Other)
  Sender: FDA-Public Use
  Company Number: 2012P1013911

PATIENT
  Age: 28 Month
  Sex: Male
  Weight: 20.4119 kg

DRUGS (1)
  1. CYPROHEPTADINE HCL [Suspect]
     Indication: MIGRAINE
     Dates: start: 20080722, end: 20080801

REACTIONS (9)
  - NERVOUS SYSTEM DISORDER [None]
  - IRRITABILITY [None]
  - HEADACHE [None]
  - VOMITING [None]
  - DROOLING [None]
  - NAUSEA [None]
  - BRAIN NEOPLASM [None]
  - EMOTIONAL DISORDER [None]
  - SOCIAL PROBLEM [None]
